FAERS Safety Report 7319996-3 (Version None)
Quarter: 2011Q1

REPORT INFORMATION
  Report Type: 
  Country: None (occurrence: None)
  Receive Date: 20110228
  Receipt Date: 20110222
  Transmission Date: 20110831
  Serious: Yes (Life-Threatening, Hospitalization)
  Sender: FDA-Public Use
  Company Number: GB-PFIZER INC-2011039050

PATIENT
  Age: 42 Year
  Sex: Female

DRUGS (6)
  1. ZOPICLONE [Suspect]
     Dosage: 6 DF, UNK
  2. SALBUTAMOL [Concomitant]
  3. PAROXETINE [Concomitant]
  4. CHAMPIX [Suspect]
     Indication: SMOKING CESSATION THERAPY
     Dosage: UNK
     Route: 048
     Dates: start: 20110106, end: 20110131
  5. BECLOMETHASONE DIPROPIONATE [Concomitant]
  6. PREMARIN [Concomitant]

REACTIONS (2)
  - DEPRESSION [None]
  - ACCIDENTAL OVERDOSE [None]
